FAERS Safety Report 8126616-7 (Version None)
Quarter: 2012Q1

REPORT INFORMATION
  Report Type: 
  Country: None (occurrence: None)
  Receive Date: 20120210
  Receipt Date: 20120131
  Transmission Date: 20120608
  Serious: No
  Sender: FDA-Public Use
  Company Number: US-BIOGENIDEC-2011BI005151

PATIENT
  Sex: Female

DRUGS (1)
  1. TYSABRI [Suspect]
     Indication: MULTIPLE SCLEROSIS
     Route: 042
     Dates: start: 20101004

REACTIONS (10)
  - MENSTRUAL DISORDER [None]
  - URINARY INCONTINENCE [None]
  - HYPOAESTHESIA [None]
  - FATIGUE [None]
  - PYREXIA [None]
  - BLOOD IRON DECREASED [None]
  - BACK PAIN [None]
  - MENSTRUATION IRREGULAR [None]
  - HAEMORRHAGE [None]
  - UVEITIS [None]
